FAERS Safety Report 19180151 (Version 1)
Quarter: 2021Q2

REPORT INFORMATION
  Report Type: Spontaneous
  Country: US (occurrence: US)
  Receive Date: 20210426
  Receipt Date: 20210426
  Transmission Date: 20210717
  Serious: Yes (Other)
  Sender: FDA-Public Use
  Company Number: NVSC2021US083560

PATIENT
  Sex: Male
  Weight: 12 kg

DRUGS (2)
  1. TABRECTA [Suspect]
     Active Substance: CAPMATINIB
     Dosage: 200 MG, BID
     Route: 048
  2. TABRECTA [Suspect]
     Active Substance: CAPMATINIB
     Indication: PRODUCT USED FOR UNKNOWN INDICATION
     Dosage: 400 MG/KG, BID
     Route: 048

REACTIONS (6)
  - Generalised oedema [Unknown]
  - Feeling abnormal [Unknown]
  - Polyuria [Unknown]
  - Disease progression [Unknown]
  - Oedema peripheral [Unknown]
  - Weight increased [Unknown]
